FAERS Safety Report 14549645 (Version 4)
Quarter: 2018Q2

REPORT INFORMATION
  Report Type: Spontaneous
  Country: US (occurrence: US)
  Receive Date: 20180219
  Receipt Date: 20180608
  Transmission Date: 20180711
  Serious: Yes (Hospitalization)
  Sender: FDA-Public Use
  Company Number: US-BIOGEN-2018BI00525893

PATIENT
  Sex: Male

DRUGS (1)
  1. TYSABRI [Suspect]
     Active Substance: NATALIZUMAB
     Indication: MULTIPLE SCLEROSIS
     Route: 065
     Dates: start: 20071227

REACTIONS (4)
  - Pneumonia [Unknown]
  - Acute myeloid leukaemia [Not Recovered/Not Resolved]
  - Influenza [Unknown]
  - Oropharyngeal pain [Unknown]
